FAERS Safety Report 8874455 (Version 2)
Quarter: 2012Q4

REPORT INFORMATION
  Report Type: 
  Country: US (occurrence: US)
  Receive Date: 20121023
  Receipt Date: 20121128
  Transmission Date: 20130627
  Serious: No
  Sender: FDA-Public Use
  Company Number: US-VERTEX PHARMACEUTICAL INC.-2012-023259

PATIENT
  Age: 54 Year
  Sex: Female

DRUGS (5)
  1. VX-950 (TELAPREVIR) [Suspect]
     Indication: HEPATITIS C
     Dosage: 750 mg, tid
     Route: 048
  2. PEGASYS [Suspect]
     Indication: HEPATITIS C
     Dosage: 180 ?g, UNK
  3. RIBAPAK [Suspect]
     Indication: HEPATITIS C
     Dosage: 1000 mg, qd
  4. RANITIDINE [Concomitant]
     Dosage: 150 mg, UNK
  5. TRAMADOL HCL [Concomitant]
     Dosage: 50 mg, UNK

REACTIONS (10)
  - Mood swings [Unknown]
  - Influenza like illness [Unknown]
  - Gastrooesophageal reflux disease [Unknown]
  - Dry skin [Unknown]
  - Injection site pain [Unknown]
  - Alopecia [Unknown]
  - Dry mouth [Unknown]
  - Fatigue [Unknown]
  - Haemorrhoids [Unknown]
  - Anorectal discomfort [Unknown]
